FAERS Safety Report 5167439-0 (Version None)
Quarter: 2006Q4

REPORT INFORMATION
  Report Type: 
  Country: None (occurrence: None)
  Receive Date: 20061130
  Receipt Date: 20061115
  Transmission Date: 20070319
  Serious: Yes (Life-Threatening, Hospitalization)
  Sender: FDA-Public Use
  Company Number: MEDI-0005142

PATIENT
  Age: 2 Month
  Sex: Female

DRUGS (4)
  1. SYNAGIS [Suspect]
     Indication: ANTIVIRAL PROPHYLAXIS
     Dosage: 65 MG, INTRAMUSCULAR
     Route: 030
     Dates: start: 20061106, end: 20061106
  2. FUROSEMIDE [Concomitant]
  3. SPIRONOLACTONE [Concomitant]
  4. ASPIRIN [Concomitant]

REACTIONS (5)
  - CARDIO-RESPIRATORY ARREST [None]
  - INSOMNIA [None]
  - ORAL INTAKE REDUCED [None]
  - RESPIRATORY FAILURE [None]
  - RESPIRATORY SYNCYTIAL VIRUS INFECTION [None]
